FAERS Safety Report 15569206 (Version 1)
Quarter: 2018Q4

REPORT INFORMATION
  Report Type: Report from Study
  Country: IE (occurrence: IE)
  Receive Date: 20181031
  Receipt Date: 20181031
  Transmission Date: 20190205
  Serious: Yes (Hospitalization, Other)
  Sender: FDA-Public Use
  Company Number: IE-TAKEDA-2018TUS025472

PATIENT
  Age: 59 Year
  Sex: Female

DRUGS (1)
  1. VEDOLIZUMAB [Suspect]
     Active Substance: VEDOLIZUMAB
     Indication: CROHN^S DISEASE
     Dosage: UNK UNK, Q4WEEKS
     Route: 042
     Dates: start: 20180604

REACTIONS (9)
  - Dizziness [Unknown]
  - Diarrhoea [Unknown]
  - Bradyphrenia [Unknown]
  - Drug effect decreased [Unknown]
  - Intestinal obstruction [Unknown]
  - Asthenia [Unknown]
  - Fatigue [Unknown]
  - Paraesthesia [Unknown]
  - Blood pressure decreased [Unknown]
